FAERS Safety Report 12249856 (Version 3)
Quarter: 2016Q2

REPORT INFORMATION
  Report Type: Spontaneous
  Country: US (occurrence: US)
  Receive Date: 20160408
  Receipt Date: 20160527
  Transmission Date: 20160815
  Serious: No
  Sender: FDA-Public Use
  Company Number: US-SHIRE-US201604221

PATIENT
  Sex: Male
  Weight: 61.22 kg

DRUGS (5)
  1. LIALDA [Suspect]
     Active Substance: MESALAMINE
     Indication: DIARRHOEA HAEMORRHAGIC
  2. PLAVIX [Concomitant]
     Active Substance: CLOPIDOGREL BISULFATE
     Indication: BLOOD DISORDER
     Dosage: 5 MG, 1X/DAY:QD
     Route: 048
  3. ATENOLOL. [Concomitant]
     Active Substance: ATENOLOL
     Indication: CARDIAC DISORDER
     Dosage: 25 MG, 1X/DAY:QD
     Route: 048
  4. LIALDA [Suspect]
     Active Substance: MESALAMINE
     Indication: COLITIS ULCERATIVE
     Dosage: 4.8 G (FOUR 1.2 G), 1X/DAY:QD
     Route: 048
     Dates: start: 20151024
  5. AMLODIPINE [Concomitant]
     Active Substance: AMLODIPINE BESYLATE
     Indication: CARDIAC DISORDER
     Dosage: 5 MG, 1X/DAY:QD
     Route: 048

REACTIONS (1)
  - Drug ineffective [Unknown]

NARRATIVE: CASE EVENT DATE: 2016
